FAERS Safety Report 5961788-1 (Version None)
Quarter: 2008Q4

REPORT INFORMATION
  Report Type: 
  Country: None (occurrence: None)
  Receive Date: 20081121
  Receipt Date: 20081106
  Transmission Date: 20090506
  Serious: Yes (Hospitalization)
  Sender: FDA-Public Use
  Company Number: DK-MERCK-0811DNK00004

PATIENT
  Age: 81 Year
  Sex: Male
  Weight: 60 kg

DRUGS (5)
  1. CANCIDAS [Suspect]
     Indication: SYSTEMIC CANDIDA
     Route: 042
     Dates: start: 20081004, end: 20081016
  2. DIGOXIN [Concomitant]
     Route: 042
  3. METOPROLOL [Concomitant]
     Route: 065
  4. LACTULOSE [Concomitant]
     Route: 065
  5. VANCOMYCIN [Concomitant]
     Route: 065

REACTIONS (2)
  - BLOOD ALKALINE PHOSPHATASE INCREASED [None]
  - GAMMA-GLUTAMYLTRANSFERASE INCREASED [None]
